FAERS Safety Report 14653616 (Version 1)
Quarter: 2018Q1

REPORT INFORMATION
  Report Type: Spontaneous
  Country: US (occurrence: US)
  Receive Date: 20180319
  Receipt Date: 20180319
  Transmission Date: 20180509
  Serious: Yes (Other)
  Sender: FDA-Public Use
  Company Number: PHEH2018US009997

PATIENT

DRUGS (2)
  1. RECLAST [Suspect]
     Active Substance: ZOLEDRONIC ACID
     Dosage: UNK ONCE IN 2014
     Route: 065
     Dates: start: 2014
  2. RECLAST [Suspect]
     Active Substance: ZOLEDRONIC ACID
     Indication: PRODUCT USED FOR UNKNOWN INDICATION
     Dosage: UNK ONCE IN 2013
     Route: 065
     Dates: start: 2013

REACTIONS (4)
  - Respiratory disorder [Unknown]
  - Gingival disorder [Unknown]
  - Angioedema [Unknown]
  - Tooth disorder [Unknown]
